FAERS Safety Report 6452764-3 (Version None)
Quarter: 2009Q4

REPORT INFORMATION
  Report Type: 
  Country: None (occurrence: None)
  Receive Date: 20091124
  Receipt Date: 20091112
  Transmission Date: 20100525
  Serious: Yes (Other)
  Sender: FDA-Public Use
  Company Number: BR-PFIZER INC-2009297211

PATIENT
  Age: 30 Year
  Sex: Male
  Weight: 83 kg

DRUGS (3)
  1. GEODON [Suspect]
     Indication: DRUG DEPENDENCE
     Dosage: 40 MG, 2X/DAY
     Route: 048
     Dates: start: 20060101
  2. GABAPENTIN [Concomitant]
  3. BROMAZEPAM [Concomitant]
     Dosage: 3 MG, UNK

REACTIONS (3)
  - BRUXISM [None]
  - DRUG DEPENDENCE [None]
  - MUSCLE SPASMS [None]
